FAERS Safety Report 11481206 (Version 1)
Quarter: 2015Q3

REPORT INFORMATION
  Report Type: Spontaneous
  Country: US (occurrence: US)
  Receive Date: 20150909
  Receipt Date: 20150909
  Transmission Date: 20151125
  Serious: No
  Sender: FDA-Public Use
  Company Number: US-BAYER-2015-415809

PATIENT
  Age: 67 Year
  Sex: Female
  Weight: 54.42 kg

DRUGS (3)
  1. LIALDA [Concomitant]
     Active Substance: MESALAMINE
  2. SIMVASTATIN. [Concomitant]
     Active Substance: SIMVASTATIN
  3. MIRALAX [Suspect]
     Active Substance: POLYETHYLENE GLYCOL 3350
     Indication: CONSTIPATION
     Dosage: HALF A CAP IN THE MORNING AND HALF CAP AT SUPPER TIME, QD
     Route: 048
     Dates: start: 201507

REACTIONS (4)
  - Gastrooesophageal reflux disease [Not Recovered/Not Resolved]
  - Product use issue [Unknown]
  - Product use issue [None]
  - Nausea [Not Recovered/Not Resolved]
